FAERS Safety Report 6198270-5 (Version None)
Quarter: 2009Q2

REPORT INFORMATION
  Report Type: 
  Country: None (occurrence: None)
  Receive Date: 20090519
  Receipt Date: 20090511
  Transmission Date: 20091009
  Serious: Yes (Death)
  Sender: FDA-Public Use
  Company Number: 268717

PATIENT
  Age: 63 Year
  Sex: Female

DRUGS (6)
  1. FLUDARABINE PHOSPHATE [Suspect]
     Dosage: 25 MG/M2
  2. (ALEMTUZUMAB) [Suspect]
     Indication: PERIPHERAL T-CELL LYMPHOMA UNSPECIFIED STAGE II
     Dosage: 3 MG DL, 10 MG D2, 30 MG D3 IN CYCLE 1, 10 MG DL, 30 MG D2, 3 IN CYCLE 2
  3. CYCLOPHOSPHAMIDE [Concomitant]
  4. DOXORUBICIN HCL [Concomitant]
  5. (ANTIBIOTICS) [Concomitant]
  6. (ANTIVIRALS NOS) [Concomitant]

REACTIONS (7)
  - CYTOMEGALOVIRUS VIRAEMIA [None]
  - DIFFUSE LARGE B-CELL LYMPHOMA [None]
  - EPSTEIN-BARR VIRUS INFECTION [None]
  - FEBRILE NEUTROPENIA [None]
  - ORAL HERPES [None]
  - PANCYTOPENIA [None]
  - PERFORMANCE STATUS DECREASED [None]
